FAERS Safety Report 25447435 (Version 2)
Quarter: 2025Q2

REPORT INFORMATION
  Report Type: Spontaneous
  Country: JP (occurrence: JP)
  Receive Date: 20250617
  Receipt Date: 20250620
  Transmission Date: 20250717
  Serious: Yes (Other)
  Sender: JOHNSON AND JOHNSON
  Company Number: JP-NShinyaku-EVA20250808501001307081

PATIENT
  Age: 4 Decade
  Sex: Female

DRUGS (7)
  1. UPTRAVI [Suspect]
     Active Substance: SELEXIPAG
     Indication: Pulmonary arterial hypertension
     Route: 048
  2. UPTRAVI [Suspect]
     Active Substance: SELEXIPAG
     Dosage: GRADUALLY INCREASED
     Route: 048
  3. OPSUMIT [Suspect]
     Active Substance: MACITENTAN
     Indication: Pulmonary arterial hypertension
     Route: 048
  4. ADCIRCA [Concomitant]
     Active Substance: TADALAFIL
     Indication: Pulmonary arterial hypertension
     Route: 048
  5. EPOPROSTENOL SODIUM [Concomitant]
     Active Substance: EPOPROSTENOL SODIUM
     Indication: Pulmonary arterial hypertension
     Route: 042
  6. EPOPROSTENOL SODIUM [Concomitant]
     Active Substance: EPOPROSTENOL SODIUM
     Route: 042
  7. EPOPROSTENOL SODIUM [Concomitant]
     Active Substance: EPOPROSTENOL SODIUM
     Route: 042

REACTIONS (2)
  - Drug-induced liver injury [Unknown]
  - Pulmonary alveolar haemorrhage [Unknown]
